FAERS Safety Report 5747964-1 (Version None)
Quarter: 2008Q2

REPORT INFORMATION
  Report Type: 
  Country: None (occurrence: None)
  Receive Date: 20080523
  Receipt Date: 20080512
  Transmission Date: 20081010
  Serious: Yes (Hospitalization, Other)
  Sender: FDA-Public Use
  Company Number: BR-ROCHE-564284

PATIENT
  Sex: Female
  Weight: 59 kg

DRUGS (12)
  1. VALIUM [Suspect]
     Indication: NERVOUSNESS
     Dosage: ONE DOSEFORM DAILY.
     Route: 048
     Dates: start: 19790401, end: 19791201
  2. VALIUM [Suspect]
     Dosage: INDICATION REPORTED AS: ISCHEMIA AND STROKE.
     Route: 048
     Dates: start: 20040101
  3. COMBIRON [Concomitant]
  4. COMBIRON [Concomitant]
  5. COMBIRON [Concomitant]
  6. RARICAP [Concomitant]
     Dosage: DRUG REPORTED AS: RARICAL
  7. RARICAP [Concomitant]
     Dosage: DRUG REPORTED AS: RARICAL
  8. RARICAP [Concomitant]
     Dosage: DRUG REPORTED AS: RARICAL
  9. RARICAP [Concomitant]
     Dosage: DRUG REPORTED AS: RARICAL
  10. RARICAP [Concomitant]
     Dosage: DRUG REPORTED AS: RARICAL
  11. RARICAP [Concomitant]
     Dosage: DRUG REPORTED AS: RARICAL
  12. BUSCOPAN [Concomitant]

REACTIONS (4)
  - CEREBROVASCULAR ACCIDENT [None]
  - HYPOTHYROIDISM [None]
  - IMPAIRED HEALING [None]
  - ISCHAEMIA [None]
